FAERS Safety Report 16759038 (Version 1)
Quarter: 2019Q4

REPORT INFORMATION
  Report Type: Spontaneous
  Country: US (occurrence: US)
  Receive Date: 20190829
  Receipt Date: 20190829
  Transmission Date: 20200122
  Serious: Yes (Death)
  Sender: FDA-Public Use
  Company Number: None

PATIENT
  Age: 54 Year
  Sex: Male

DRUGS (2)
  1. UNK [Concomitant]
     Active Substance: UNSPECIFIED INGREDIENT
  2. NEULASTA [Suspect]
     Active Substance: PEGFILGRASTIM
     Indication: GASTRIC CANCER
     Dosage: ?          OTHER FREQUENCY:Q 14 DAYS;?
     Route: 048
     Dates: start: 20190525

REACTIONS (1)
  - Death [None]

NARRATIVE: CASE EVENT DATE: 20190810
